FAERS Safety Report 20862920 (Version 3)
Quarter: 2023Q2

REPORT INFORMATION
  Report Type: Report from Study
  Country: JP (occurrence: JP)
  Receive Date: 20220523
  Receipt Date: 20230621
  Transmission Date: 20230722
  Serious: No
  Sender: FDA-Public Use
  Company Number: JP-BAYER-2022A063269

PATIENT
  Age: 51 Year
  Sex: Male
  Weight: 95.1 kg

DRUGS (4)
  1. VITRAKVI [Suspect]
     Active Substance: LAROTRECTINIB
     Indication: Neoplasm skin
     Dosage: 100 MG, BID
     Route: 048
     Dates: start: 20220415, end: 20220429
  2. VITRAKVI [Suspect]
     Active Substance: LAROTRECTINIB
     Indication: Neoplasm skin
     Dosage: 100 MG, BID
     Route: 048
     Dates: start: 20220512, end: 20220518
  3. VITRAKVI [Suspect]
     Active Substance: LAROTRECTINIB
     Indication: Neoplasm skin
     Dosage: 100 MG, BID
     Route: 048
     Dates: start: 20220526, end: 20220604
  4. VITRAKVI [Suspect]
     Active Substance: LAROTRECTINIB
     Indication: Neoplasm skin
     Dosage: 75 MG, BID
     Route: 048
     Dates: start: 20220605

REACTIONS (2)
  - Neuropathy peripheral [Not Recovered/Not Resolved]
  - Neuropathy peripheral [Not Recovered/Not Resolved]

NARRATIVE: CASE EVENT DATE: 20220422
